FAERS Safety Report 8142274-X (Version None)
Quarter: 2012Q1

REPORT INFORMATION
  Report Type: 
  Country: None (occurrence: None)
  Receive Date: 20120216
  Receipt Date: 20120215
  Transmission Date: 20120608
  Serious: Yes (Other)
  Sender: FDA-Public Use
  Company Number: US-PFIZER INC-2012041251

PATIENT
  Sex: Male
  Weight: 83.9 kg

DRUGS (7)
  1. AMLODIPINE [Concomitant]
     Indication: HYPERTENSION
     Dosage: 2 MG, UNK
  2. SIMVASTATIN [Concomitant]
     Indication: BLOOD CHOLESTEROL INCREASED
     Dosage: 20 MG, UNK
  3. HYDROCHLOROTHIAZIDE [Concomitant]
     Dosage: 25 MG, UNK
  4. CHANTIX [Suspect]
     Dosage: 1 MG, 2X/DAY
     Route: 048
     Dates: start: 20120101
  5. CHANTIX [Suspect]
     Indication: SMOKING CESSATION THERAPY
     Dosage: 0.5 MG, 1X/DAY
     Route: 048
     Dates: start: 20120126, end: 20120101
  6. ACETYLSALICYLIC ACID [Concomitant]
     Dosage: 81 MG, UNK
  7. METOPROLOL [Concomitant]
     Indication: HYPERTENSION
     Dosage: 25 MG, 2X/DAY

REACTIONS (3)
  - ANXIETY [None]
  - INSOMNIA [None]
  - AGITATION [None]
